FAERS Safety Report 4893811-X (Version None)
Quarter: 2005Q4

REPORT INFORMATION
  Report Type: 
  Country: None (occurrence: None)
  Receive Date: 20051223
  Receipt Date: 20051117
  Transmission Date: 20060501
  Serious: No
  Sender: FDA-Public Use
  Company Number: 2005PV004819

PATIENT
  Age: 58 Year
  Sex: Female
  Weight: 97.5234 kg

DRUGS (6)
  1. SYMLIN [Suspect]
     Indication: DIABETES MELLITUS NON-INSULIN-DEPENDENT
     Dosage: 15 MCG;TID;SC
     Route: 058
     Dates: start: 20051111
  2. HUMALOG PEN [Concomitant]
  3. LANTUS [Concomitant]
  4. METFORMIN [Concomitant]
  5. GLUCOTROL XL [Concomitant]
  6. NEXIUM [Concomitant]

REACTIONS (3)
  - BLOOD GLUCOSE INCREASED [None]
  - FLATULENCE [None]
  - STRESS [None]
